FAERS Safety Report 16956949 (Version 1)
Quarter: 2019Q4

REPORT INFORMATION
  Report Type: Spontaneous
  Country: US (occurrence: US)
  Receive Date: 20191023
  Receipt Date: 20191023
  Transmission Date: 20200122
  Serious: No
  Sender: FDA-Public Use
  Company Number: None

PATIENT
  Age: 45 Year
  Sex: Male
  Weight: 166.5 kg

DRUGS (10)
  1. HUMULIN R U-500 [Concomitant]
     Active Substance: INSULIN HUMAN
     Dates: start: 20171017, end: 20190419
  2. AMLODIPINE [Concomitant]
     Active Substance: AMLODIPINE BESYLATE
     Dates: start: 20140402, end: 20150509
  3. LANTUS SOLOSTAR [Concomitant]
     Active Substance: INSULIN GLARGINE
     Dates: start: 20140714, end: 20190419
  4. LYRICA [Suspect]
     Active Substance: PREGABALIN
     Route: 048
     Dates: start: 20171017, end: 20190419
  5. PROVENTIL [Concomitant]
     Active Substance: ALBUTEROL
     Dates: start: 20140611
  6. SPIRIVA WITH HANDIHALER 18MCG [Concomitant]
     Dates: start: 20140714
  7. SYMBICORT 160/4.5 MCG [Concomitant]
     Dates: start: 20140611
  8. PANTOPRAZOLE 40MG [Concomitant]
     Active Substance: PANTOPRAZOLE SODIUM
     Dates: start: 20140402, end: 20190419
  9. LISINOPRIL. [Concomitant]
     Active Substance: LISINOPRIL
     Dates: start: 20140402, end: 20190419
  10. ATORVASTATIN 20MG [Concomitant]
     Active Substance: ATORVASTATIN
     Dates: start: 20140519, end: 20190519

REACTIONS (1)
  - Rash [None]

NARRATIVE: CASE EVENT DATE: 20190419
